FAERS Safety Report 5209175-8 (Version None)
Quarter: 2007Q1

REPORT INFORMATION
  Report Type: 
  Country: None (occurrence: None)
  Receive Date: 20070111
  Receipt Date: 20070108
  Transmission Date: 20070707
  Serious: Yes (Other)
  Sender: FDA-Public Use
  Company Number: TPA2006A02290

PATIENT
  Age: 65 Year
  Sex: Female
  Weight: 80.4 kg

DRUGS (7)
  1. PIOGLITAZONE HCL [Suspect]
     Indication: GLUCOSE TOLERANCE IMPAIRED
     Dosage: 1 IN 1 D, PER ORAL
     Route: 048
     Dates: start: 20040313
  2. NEXIUM (ESOMEPRAZOLE MAGNESIUM) (CAPSULES) [Concomitant]
  3. PAXIL [Concomitant]
  4. VITAMIN B12 INJECTION (CYANOCOBALAMIN) [Concomitant]
  5. VYTORIN (SIMVASTATIN, EZETIMIBE) [Concomitant]
  6. LEVOXYL [Concomitant]
  7. ACTONEL [Concomitant]

REACTIONS (2)
  - CYSTOCELE [None]
  - STRESS URINARY INCONTINENCE [None]
